FAERS Safety Report 7860937-8 (Version None)
Quarter: 2011Q4

REPORT INFORMATION
  Report Type: 
  Country: None (occurrence: None)
  Receive Date: 20111027
  Receipt Date: 20111024
  Transmission Date: 20120403
  Serious: Yes (Hospitalization, Disabling, Other)
  Sender: FDA-Public Use
  Company Number: US-ABBOTT-05P-163-0532041-00

PATIENT
  Sex: Female
  Weight: 68.1 kg

DRUGS (10)
  1. KLONOPIN [Concomitant]
     Indication: ANXIETY
     Route: 048
  2. ESTROGEN NOS [Concomitant]
     Indication: PRODUCT USED FOR UNKNOWN INDICATION
     Route: 048
  3. LUPRON DEPOT [Suspect]
     Indication: ENDOMETRIOSIS
     Route: 030
  4. ASCORBIC ACID [Concomitant]
     Indication: VITAMIN SUPPLEMENTATION
     Route: 048
  5. VITAMIN B COMPLEX CAP [Concomitant]
     Indication: VITAMIN SUPPLEMENTATION
     Route: 048
  6. ZOLOFT [Concomitant]
     Indication: DEPRESSION
     Route: 048
  7. OXYCODONE HCL [Concomitant]
     Indication: PAIN
     Route: 048
  8. CALCIUM WITH VITAMIN D [Concomitant]
     Indication: VITAMIN SUPPLEMENTATION
     Route: 048
  9. CELEXA [Concomitant]
     Indication: DEPRESSION
     Route: 048
  10. VALIUM [Concomitant]
     Indication: PRODUCT USED FOR UNKNOWN INDICATION
     Route: 048

REACTIONS (24)
  - HYPERTENSION [None]
  - WEIGHT INCREASED [None]
  - FATIGUE [None]
  - MALAISE [None]
  - CHEST PAIN [None]
  - URINARY RETENTION [None]
  - BEDRIDDEN [None]
  - ARTHRALGIA [None]
  - BONE LOSS [None]
  - VENTRICULAR EXTRASYSTOLES [None]
  - GAIT DISTURBANCE [None]
  - PYREXIA [None]
  - OEDEMA PERIPHERAL [None]
  - INJURY [None]
  - OSTEOPOROSIS [None]
  - ARRHYTHMIA [None]
  - DEPRESSION [None]
  - BONE PAIN [None]
  - INFLUENZA [None]
  - TENSION HEADACHE [None]
  - AMNESIA [None]
  - MYALGIA [None]
  - PAIN [None]
  - ARTHROPATHY [None]
